FAERS Safety Report 12747062 (Version 1)
Quarter: 2016Q3

REPORT INFORMATION
  Report Type: Spontaneous
  Country: US (occurrence: US)
  Receive Date: 20160915
  Receipt Date: 20160915
  Transmission Date: 20161109
  Serious: No
  Sender: FDA-Public Use
  Company Number: US-ASTELLAS-2015US035832

PATIENT
  Age: 71 Year
  Sex: Male

DRUGS (3)
  1. XTANDI [Suspect]
     Active Substance: ENZALUTAMIDE
     Indication: PROSTATE CANCER
     Route: 065
  2. CRESTOR [Suspect]
     Active Substance: ROSUVASTATIN CALCIUM
     Indication: PRODUCT USED FOR UNKNOWN INDICATION
     Dosage: UNK, UNKNOWN FREQ.
     Route: 065
     Dates: end: 201510
  3. XTANDI [Suspect]
     Active Substance: ENZALUTAMIDE
     Route: 065
     Dates: end: 2015

REACTIONS (16)
  - Hot flush [Unknown]
  - Yawning [Recovering/Resolving]
  - Asthenia [Unknown]
  - Somnolence [Recovering/Resolving]
  - Underdose [Unknown]
  - Muscular weakness [Unknown]
  - Tremor [Unknown]
  - Arthralgia [Unknown]
  - Dizziness [Recovered/Resolved]
  - Headache [Recovering/Resolving]
  - Peripheral swelling [Recovering/Resolving]
  - Activities of daily living impaired [Unknown]
  - Fall [Unknown]
  - Thinking abnormal [Unknown]
  - Myalgia [Unknown]
  - Depression [Unknown]

NARRATIVE: CASE EVENT DATE: 20050928
